FAERS Safety Report 6695344-7 (Version None)
Quarter: 2010Q2

REPORT INFORMATION
  Report Type: 
  Country: None (occurrence: None)
  Receive Date: 20100423
  Receipt Date: 20100423
  Transmission Date: 20101027
  Serious: Yes (Other)
  Sender: FDA-Public Use
  Company Number: None

PATIENT
  Sex: Female
  Weight: 66.6788 kg

DRUGS (2)
  1. DIOVAN [Suspect]
     Indication: BLOOD PRESSURE
     Dosage: 1X DAY
     Dates: start: 20050101, end: 20070101
  2. METAPROLAN METOPROLOL [Suspect]
     Indication: BLOOD PRESSURE
     Dosage: 1X DAY
     Dates: start: 20070101, end: 20090101

REACTIONS (4)
  - BLOOD GLUCOSE INCREASED [None]
  - BRAIN INJURY [None]
  - COUGH [None]
  - DEPRESSION [None]
